FAERS Safety Report 5549472-X (Version None)
Quarter: 2007Q4

REPORT INFORMATION
  Report Type: 
  Country: None (occurrence: None)
  Receive Date: 20071212
  Receipt Date: 20071205
  Transmission Date: 20080405
  Serious: Yes (Other)
  Sender: FDA-Public Use
  Company Number: PHFR2007GB03564

PATIENT
  Sex: Female

DRUGS (1)
  1. LAMISIL AT [Suspect]

REACTIONS (1)
  - HAEMATOCHEZIA [None]
